FAERS Safety Report 8613037-3 (Version None)
Quarter: 2012Q3

REPORT INFORMATION
  Report Type: 
  Country: None (occurrence: None)
  Receive Date: 20120822
  Receipt Date: 20120815
  Transmission Date: 20120928
  Serious: Yes (Other)
  Sender: FDA-Public Use
  Company Number: US-PFIZER INC-2012153551

PATIENT
  Age: 65 Year
  Sex: Female

DRUGS (10)
  1. FLUTICASONE PROPIONATE/SALMETEROL [Concomitant]
  2. GABAPENTIN [Concomitant]
  3. PRISTIQ [Concomitant]
  4. NEXIUM [Concomitant]
  5. CELEBREX [Suspect]
     Indication: OSTEOARTHRITIS
     Dosage: 1 PO QD
     Route: 048
     Dates: start: 20091214, end: 20120622
  6. TRAMADOL [Concomitant]
  7. COMBIVENT [Concomitant]
  8. METHOCARBAMOL [Concomitant]
  9. PRAVASTATIN [Concomitant]
  10. THEOPHYLLINE [Concomitant]

REACTIONS (1)
  - GLOMERULAR FILTRATION RATE DECREASED [None]
